FAERS Safety Report 9761263 (Version 3)
Quarter: 2021Q4

REPORT INFORMATION
  Report Type: Report from Study
  Country: US (occurrence: US)
  Receive Date: 20131216
  Receipt Date: 20211124
  Transmission Date: 20220304
  Serious: Yes (Death, Life-Threatening, Hospitalization)
  Sender: FDA-Public Use
  Company Number: US-SA-2013SA129336

PATIENT
  Age: 78 Year
  Sex: Female
  Weight: 72.5 kg

DRUGS (18)
  1. CLOFARABINE [Suspect]
     Active Substance: CLOFARABINE
     Indication: Acute myeloid leukaemia
     Dosage: 30 MG/M2
     Route: 042
     Dates: start: 20111108, end: 20111112
  2. ACYCLOVIR [Concomitant]
     Active Substance: ACYCLOVIR
     Dosage: UNK
  3. AMILORIDE [Concomitant]
     Active Substance: AMILORIDE
     Dosage: UNK
  4. AMPHOTERICIN B [Concomitant]
     Active Substance: AMPHOTERICIN B
     Dosage: UNK
  5. CHLOROTHIAZIDE [Concomitant]
     Active Substance: CHLOROTHIAZIDE
     Dosage: UNK
  6. COLLAGENASE [Concomitant]
     Active Substance: COLLAGENASE CLOSTRIDIUM HISTOLYTICUM
     Dosage: UNK
  7. ESCITALOPRAM [Concomitant]
     Active Substance: ESCITALOPRAM OXALATE
     Dosage: UNK
  8. FUROSEMIDE [Concomitant]
     Active Substance: FUROSEMIDE
     Dosage: UNK
  9. HYDROCORTISONE [Concomitant]
     Active Substance: HYDROCORTISONE
     Dosage: UNK
  10. INSULIN NOS [Concomitant]
     Active Substance: INSULIN NOS
     Dosage: UNK
  11. IOPAMIDOL [Concomitant]
     Active Substance: IOPAMIDOL
     Dosage: UNK
  12. LEVOTHYROXINE [Concomitant]
     Active Substance: LEVOTHYROXINE
     Dosage: UNK
  13. EPINEPHRINE [Concomitant]
     Active Substance: EPINEPHRINE
     Dosage: UNK
  14. METOPROLOL [Concomitant]
     Active Substance: METOPROLOL
     Dosage: UNK
  15. MORPHINE [Concomitant]
     Active Substance: MORPHINE
     Dosage: UNK
  16. PANTOPRAZOLE [Concomitant]
     Active Substance: PANTOPRAZOLE
     Dosage: UNK
  17. PRIMAXIN IV [Concomitant]
     Active Substance: CILASTATIN SODIUM\IMIPENEM
     Dosage: UNK
  18. VANCOMYCIN [Concomitant]
     Active Substance: VANCOMYCIN
     Dosage: UNK

REACTIONS (2)
  - Acute myeloid leukaemia [Fatal]
  - Neoplasm [Unknown]
